FAERS Safety Report 6377621-2 (Version None)
Quarter: 2009Q3

REPORT INFORMATION
  Report Type: 
  Country: None (occurrence: None)
  Receive Date: 20090925
  Receipt Date: 20090915
  Transmission Date: 20100115
  Serious: Yes (Other)
  Sender: FDA-Public Use
  Company Number: CA-ALEXION-A200900739

PATIENT

DRUGS (9)
  1. SOLIRIS [Suspect]
     Indication: PAROXYSMAL NOCTURNAL HAEMOGLOBINURIA
     Dosage: 600 MG WEEKLY X5W
     Route: 042
     Dates: start: 20090819
  2. PREDNISONE TAB [Concomitant]
     Indication: HAEMOLYSIS
     Dosage: 20 MG (1-2) PRN
     Route: 048
     Dates: end: 20090902
  3. PREDNISONE TAB [Concomitant]
     Dosage: 10 MG EVERY 2 DAYS
     Route: 048
     Dates: start: 20090902
  4. DANAZOL [Concomitant]
     Dosage: 400 MG, QD
     Route: 048
  5. IRON [Concomitant]
     Dosage: 300 MG, QD
     Route: 048
  6. FOLIC ACID [Concomitant]
     Dosage: 5 MG QD
  7. VITAMIN A [Concomitant]
     Dosage: 8000 UNITS QD
     Route: 048
  8. VITAMIN B12                        /00056201/ [Concomitant]
     Dosage: 1000 UNITS 1X MONTH
     Route: 048
  9. CELEXA [Concomitant]
     Indication: DEPRESSION
     Dosage: UNK
     Route: 048
     Dates: start: 20090701

REACTIONS (4)
  - ABDOMINAL RIGIDITY [None]
  - CHEST PAIN [None]
  - HEADACHE [None]
  - OROPHARYNGEAL SPASM [None]
